FAERS Safety Report 23105216 (Version 3)
Quarter: 2023Q4

REPORT INFORMATION
  Report Type: Spontaneous
  Country: ES (occurrence: ES)
  Receive Date: 20231025
  Receipt Date: 20231102
  Transmission Date: 20240109
  Serious: Yes (Other)
  Sender: FDA-Public Use
  Company Number: ES-009507513-2310ESP009690

PATIENT
  Age: 59 Year
  Sex: Female

DRUGS (2)
  1. DORAVIRINE [Suspect]
     Active Substance: DORAVIRINE
     Indication: HIV infection
     Dates: start: 2023
  2. DOLUTEGRAVIR [Concomitant]
     Active Substance: DOLUTEGRAVIR

REACTIONS (2)
  - HIV viraemia [Unknown]
  - Virologic failure [Unknown]

NARRATIVE: CASE EVENT DATE: 20230101
